FAERS Safety Report 9318733 (Version 3)
Quarter: 2013Q2

REPORT INFORMATION
  Report Type: Spontaneous
  Country: JP (occurrence: JP)
  Receive Date: 20130530
  Receipt Date: 20130620
  Transmission Date: 20140414
  Serious: Yes (Other)
  Sender: FDA-Public Use
  Company Number: JP-PFIZER INC-2013163507

PATIENT
  Age: 75 Year
  Sex: Female

DRUGS (12)
  1. CARDENALIN [Suspect]
     Indication: HYPERTENSION
     Dosage: 1 MG, DAILY
     Route: 048
     Dates: start: 20101012, end: 20130513
  2. CARDENALIN [Suspect]
     Dosage: 2 MG, DAILY
     Route: 048
     Dates: start: 20130514
  3. PRAVASTAN [Concomitant]
     Dosage: 5 MG, DAILY
     Route: 048
     Dates: start: 20120821
  4. TIOSTAR [Concomitant]
     Dosage: 20 MG, DAILY
     Route: 048
     Dates: start: 20120821
  5. PLETAAL [Concomitant]
     Dosage: 50 MG, DAILY
     Route: 048
     Dates: start: 20100818
  6. ADALAT L [Concomitant]
     Dosage: 60 MG, DAILY
     Route: 048
     Dates: start: 20090218
  7. GLUCOBAY [Concomitant]
     Dosage: 150 MG, DAILY
     Route: 048
  8. FEROTYM [Concomitant]
     Dosage: 50 MG, DAILY
     Route: 048
     Dates: start: 20120821
  9. NATRIX [Concomitant]
     Dosage: 1 MG, DAILY
     Route: 048
     Dates: start: 20130305
  10. METGLUCO [Concomitant]
     Dosage: 500 MG, DAILY
     Route: 048
     Dates: start: 20110722
  11. OLMETEC [Concomitant]
     Dosage: 40 MG, DAILY
     Route: 048
     Dates: start: 20120913
  12. SOLANAX [Concomitant]
     Dosage: 1.2 MG, DAILY
     Route: 048
     Dates: start: 20090218

REACTIONS (1)
  - Cataract [Unknown]
